FAERS Safety Report 8937189 (Version 2)
Quarter: 2013Q4

REPORT INFORMATION
  Report Type: Spontaneous
  Country: GB (occurrence: GB)
  Receive Date: 20121121
  Receipt Date: 20131003
  Transmission Date: 20140711
  Serious: Yes (Hospitalization)
  Sender: FDA-Public Use
  Company Number: GB-BANPHARM-20120352

PATIENT
  Age: 47 Year
  Sex: Male

DRUGS (2)
  1. IBUPROFEN UNKNOWN PRODUCT [Suspect]
     Indication: HEADACHE
     Dosage: 200 MG, PRN
     Route: 048
     Dates: end: 20041219
  2. WARFARIN [Concomitant]
     Indication: DEEP VEIN THROMBOSIS
     Route: 048
     Dates: end: 200412

REACTIONS (4)
  - Dyspnoea [Recovering/Resolving]
  - Melaena [Recovering/Resolving]
  - Oesophagitis [Recovering/Resolving]
  - Chest pain [Recovering/Resolving]
